FAERS Safety Report 5744018-5 (Version None)
Quarter: 2008Q2

REPORT INFORMATION
  Report Type: 
  Country: None (occurrence: None)
  Receive Date: 20080516
  Receipt Date: 20080516
  Transmission Date: 20081010
  Serious: Yes (Other)
  Sender: FDA-Public Use
  Company Number: None

PATIENT
  Age: 9 Year
  Sex: Female
  Weight: 25.4014 kg

DRUGS (1)
  1. CELEXA [Suspect]
     Indication: ANXIETY
     Dosage: 20MG ONCE DAILY PO
     Route: 048
     Dates: start: 20040819, end: 20080515

REACTIONS (6)
  - ABDOMINAL PAIN UPPER [None]
  - ANXIETY [None]
  - NAUSEA [None]
  - PYREXIA [None]
  - TREMOR [None]
  - VOMITING [None]
